FAERS Safety Report 7630059-X (Version None)
Quarter: 2011Q3

REPORT INFORMATION
  Report Type: 
  Country: None (occurrence: None)
  Receive Date: 20110714
  Receipt Date: 20110701
  Transmission Date: 20111222
  Serious: Yes (Hospitalization, Other)
  Sender: FDA-Public Use
  Company Number: 2011SP030828

PATIENT
  Age: 64 Year
  Sex: Male
  Weight: 68 kg

DRUGS (6)
  1. PEG-INTRON [Suspect]
     Indication: HEPATITIS C
     Dosage: 120 MCG; QW; SC
     Route: 058
     Dates: start: 20100326, end: 20110218
  2. PEG-INTRON [Suspect]
  3. BOCEPREVIR (SCH-503034) [Suspect]
     Indication: HEPATITIS C
     Dosage: 800 MG; TID; PO
     Route: 048
     Dates: start: 20100423, end: 20110224
  4. DUSTERIDE [Concomitant]
  5. ASPIRIN [Concomitant]
  6. REBETOL [Suspect]
     Indication: HEPATITIS C
     Dosage: 1000 MG; QD; PO
     Route: 048
     Dates: start: 20100326, end: 20110224

REACTIONS (2)
  - INTESTINAL ADENOCARCINOMA [None]
  - IRON DEFICIENCY ANAEMIA [None]
